FAERS Safety Report 10238584 (Version 3)
Quarter: 2017Q2

REPORT INFORMATION
  Report Type: Spontaneous
  Country: US (occurrence: US)
  Receive Date: 20140616
  Receipt Date: 20170605
  Transmission Date: 20170829
  Serious: Yes (Other)
  Sender: FDA-Public Use
  Company Number: US-PFIZER INC-2014160126

PATIENT
  Age: 39 Year
  Sex: Male
  Weight: 73 kg

DRUGS (5)
  1. PHOSPHOLINE IODIDE [Suspect]
     Active Substance: ECHOTHIOPHATE IODIDE
     Indication: GLAUCOMA
     Dosage: UNK UNK, 2X/DAY (0.125%)
     Route: 047
     Dates: start: 1995
  2. DECADRON [Concomitant]
     Active Substance: DEXAMETHASONE
     Indication: EYE DISORDER
     Dosage: UNK, 2X/DAY
  3. PHOSPHOLINE IODIDE [Suspect]
     Active Substance: ECHOTHIOPHATE IODIDE
     Indication: INTRAOCULAR PRESSURE TEST ABNORMAL
  4. ACETAZOLAMIDE. [Concomitant]
     Active Substance: ACETAZOLAMIDE
     Indication: EYE INFLAMMATION
     Dosage: 250 MG, 2X/DAY
  5. VOLTAREN [Concomitant]
     Active Substance: DICLOFENAC SODIUM
     Indication: EYE DISORDER
     Dosage: UNK, 2X/DAY

REACTIONS (7)
  - Condition aggravated [Unknown]
  - Visual impairment [Unknown]
  - Eye inflammation [Unknown]
  - Intraocular pressure increased [Not Recovered/Not Resolved]
  - Corneal opacity [Not Recovered/Not Resolved]
  - Vision blurred [Not Recovered/Not Resolved]
  - Oedema [Recovered/Resolved with Sequelae]

NARRATIVE: CASE EVENT DATE: 201401
